FAERS Safety Report 5919795-0 (Version None)
Quarter: 2008Q4

REPORT INFORMATION
  Report Type: 
  Country: None (occurrence: None)
  Receive Date: 20081015
  Receipt Date: 20081006
  Transmission Date: 20090506
  Serious: Yes (Hospitalization)
  Sender: FDA-Public Use
  Company Number: DK-PFIZER INC-2008084077

PATIENT
  Sex: Female

DRUGS (16)
  1. IRINOTECAN HCL [Suspect]
     Indication: GLIOBLASTOMA MULTIFORME
     Dosage: DAILY DOSE:231MG
     Route: 042
     Dates: start: 20071207, end: 20080118
  2. CETUXIMAB [Suspect]
     Indication: GLIOBLASTOMA MULTIFORME
     Dosage: DAILY DOSE:740MG-FREQ:ONCE
     Route: 042
     Dates: start: 20071207, end: 20071207
  3. CETUXIMAB [Suspect]
     Dosage: DAILY DOSE:462.5MG
     Route: 042
     Dates: start: 20071214, end: 20080125
  4. AVASTIN [Suspect]
     Indication: GLIOBLASTOMA MULTIFORME
     Dosage: DAILY DOSE:705MG
     Route: 042
     Dates: start: 20071207, end: 20080118
  5. PREDNISOLONE [Concomitant]
     Indication: DISEASE PROGRESSION
     Dosage: DAILY DOSE:50MG-FREQ:QD
     Dates: start: 20071030, end: 20071220
  6. PREDNISOLONE [Concomitant]
     Dosage: DAILY DOSE:75MG-FREQ:QD
     Dates: start: 20071221, end: 20080125
  7. PREDNISOLONE [Concomitant]
     Dosage: DAILY DOSE:62.5MG-FREQ:QD
     Dates: start: 20080125
  8. ACYCLOVIR [Concomitant]
     Indication: HERPES VIRUS INFECTION
     Dosage: DAILY DOSE:50MG
     Route: 061
     Dates: start: 20071230
  9. ACYCLOVIR [Concomitant]
     Dosage: DAILY DOSE:200MG
     Dates: start: 20071230
  10. MANDOLGIN [Concomitant]
     Indication: ARTHRALGIA
     Dosage: DAILY DOSE:50MG-FREQ:AS REQUIRED
     Dates: start: 20080118, end: 20080118
  11. DIFLUCAN [Concomitant]
     Indication: FUNGAL INFECTION
     Dosage: DAILY DOSE:100MG
     Dates: start: 20080101
  12. PANTOPRAZOLE SODIUM [Concomitant]
     Indication: GASTRIC ULCER
     Dosage: DAILY DOSE:40MG
     Dates: start: 20071221
  13. VIBRADOX [Concomitant]
     Indication: ACNE
     Dates: start: 20080118
  14. ATROPINE [Concomitant]
     Indication: PREMEDICATION
     Dosage: DAILY DOSE:1MG-FREQ:FOR EACH IRINOTECAN TREATMENT
     Route: 058
  15. TAVEGYL [Concomitant]
     Indication: PREMEDICATION
     Dosage: DAILY DOSE:2MG-FREQ:BEFORE EACH CETUXIMAB TREATMENT
     Route: 042
  16. ONDANSETRON [Concomitant]
     Indication: PROPHYLAXIS OF NAUSEA AND VOMITING
     Dosage: DAILY DOSE:16MG-FREQ:BEFORE EACH TREATMENT
     Route: 048

REACTIONS (4)
  - ALVEOLITIS ALLERGIC [None]
  - ARTHRALGIA [None]
  - DYSPHAGIA [None]
  - INTENTION TREMOR [None]
